FAERS Safety Report 25877763 (Version 1)
Quarter: 2025Q4

REPORT INFORMATION
  Report Type: Spontaneous
  Country: US (occurrence: None)
  Receive Date: 20251003
  Receipt Date: 20251003
  Transmission Date: 20260117
  Serious: Yes (Hospitalization)
  Sender: FDA-CTU
  Company Number: None

PATIENT
  Sex: Male

DRUGS (10)
  1. ABIRATERONE ACETATE [Suspect]
     Active Substance: ABIRATERONE ACETATE
     Indication: Prostate cancer
     Dosage: TAKE 2 TABLETS BY MOUTH EVERY DAY
     Route: 048
     Dates: start: 20240822
  2. ATORVASTATIN [Concomitant]
     Active Substance: ATORVASTATIN
  3. DIGOXIN  TAB 0.25MG [Concomitant]
  4. ELIOUIS  TAB 5MG [Concomitant]
  5. ENTRESTO  TAB 49-51MG [Concomitant]
  6. ESCITALOPRAM TAB  10MG [Concomitant]
  7. JARDIANCE [Concomitant]
     Active Substance: EMPAGLIFLOZIN
  8. LUPRON DEPOT [Concomitant]
     Active Substance: LEUPROLIDE ACETATE
  9. METOPROL SUC TAB 25MG ER [Concomitant]
  10. PREDNISONE [Concomitant]
     Active Substance: PREDNISONE

REACTIONS (2)
  - Hospitalisation [None]
  - Therapy interrupted [None]
